FAERS Safety Report 9760892 (Version 1)
Quarter: 2013Q4

REPORT INFORMATION
  Report Type: Spontaneous
  Country: US (occurrence: US)
  Receive Date: 20131216
  Receipt Date: 20131216
  Transmission Date: 20140711
  Serious: No
  Sender: FDA-Public Use
  Company Number: US-PFIZER INC-2013357837

PATIENT
  Age: 58 Year
  Sex: Male
  Weight: 81.63 kg

DRUGS (2)
  1. LYRICA [Suspect]
     Dosage: 2 DF, AT ONCE
     Route: 048
     Dates: start: 201310, end: 201310
  2. LYRICA [Suspect]
     Dosage: DF, 2X/DAY
     Route: 048
     Dates: start: 201310

REACTIONS (3)
  - Gait disturbance [Unknown]
  - Feeling abnormal [Unknown]
  - Dizziness [Unknown]
